FAERS Safety Report 7711887-9 (Version None)
Quarter: 2011Q3

REPORT INFORMATION
  Report Type: 
  Country: None (occurrence: None)
  Receive Date: 20110823
  Receipt Date: 20110809
  Transmission Date: 20111222
  Serious: Yes (Hospitalization)
  Sender: FDA-Public Use
  Company Number: B0740352A

PATIENT
  Age: 15 Month
  Sex: Male

DRUGS (1)
  1. ONDANSETRON HCL [Suspect]
     Dosage: ORAL
     Route: 048

REACTIONS (7)
  - TOXICITY TO VARIOUS AGENTS [None]
  - ELECTROCARDIOGRAM QT PROLONGED [None]
  - SINUS TACHYCARDIA [None]
  - SOMNOLENCE [None]
  - AGITATION [None]
  - ACCIDENTAL DRUG INTAKE BY CHILD [None]
  - FLUSHING [None]
